FAERS Safety Report 23468551 (Version 1)
Quarter: 2024Q1

REPORT INFORMATION
  Report Type: Spontaneous
  Country: US (occurrence: None)
  Receive Date: 20240201
  Receipt Date: 20240201
  Transmission Date: 20240410
  Serious: Yes (Other)
  Sender: FDA-Public Use
  Company Number: None

PATIENT
  Sex: Female

DRUGS (13)
  1. ADBRY [Suspect]
     Active Substance: TRALOKINUMAB-LDRM
     Indication: Dermatitis atopic
     Dosage: FREQUENCY : EVERY OTHER WEEK;?INJECT 300 MG (2 SYRINGES) UNDER THE SKIN (SUBCUTANEOUS INJECTION) ONC
     Route: 058
     Dates: start: 20231220
  2. ADAPALENE CRE [Concomitant]
  3. DUPIXENT [Concomitant]
     Active Substance: DUPILUMAB
  4. FISH OIL [Concomitant]
     Active Substance: FISH OIL
  5. FLUTICASONE SPR [Concomitant]
  6. IRON [Concomitant]
  7. METHYLPREDNISOLONE [Concomitant]
     Active Substance: METHYLPREDNISOLONE
  8. NEXLETOL [Concomitant]
     Active Substance: BEMPEDOIC ACID
  9. OMEPRAZOLE [Concomitant]
     Active Substance: OMEPRAZOLE
  10. PFIER BIVAL BA4/BA5 [Concomitant]
  11. TRIAMCINOLON OIN [Concomitant]
  12. VITAMIN D [Concomitant]
     Active Substance: VITAMIN D NOS
  13. ZYRTEC ALLGY [Concomitant]

REACTIONS (2)
  - Psoriasis [None]
  - Therapy cessation [None]
